FAERS Safety Report 6954726-6 (Version None)
Quarter: 2010Q3

REPORT INFORMATION
  Report Type: 
  Country: None (occurrence: None)
  Receive Date: 20100829
  Receipt Date: 20100125
  Transmission Date: 20110219
  Serious: No
  Sender: FDA-Public Use
  Company Number: US-ALLERGAN-1000940US

PATIENT
  Sex: Female

DRUGS (2)
  1. FML [Suspect]
     Indication: DRY SKIN
     Dosage: UNK
     Route: 047
  2. FML [Suspect]
     Indication: EYELID IRRITATION

REACTIONS (1)
  - EYE IRRITATION [None]
